FAERS Safety Report 5150316-9 (Version None)
Quarter: 2006Q4

REPORT INFORMATION
  Report Type: 
  Country: None (occurrence: None)
  Receive Date: 20061108
  Receipt Date: 20061019
  Transmission Date: 20070319
  Serious: Yes (Other)
  Sender: FDA-Public Use
  Company Number: GB-2006-024066

PATIENT
  Sex: Male

DRUGS (2)
  1. BETAFERON(INTERFERON BETA-1B) INJECTION, 250UG [Suspect]
     Indication: MULTIPLE SCLEROSIS
     Dosage: SUBCUTANEOUS
     Route: 058
     Dates: start: 20010101
  2. CORTICOSTEROID NOS (CORTICOSTEROID NOS) [Suspect]

REACTIONS (1)
  - DIABETES MELLITUS INSULIN-DEPENDENT [None]
